FAERS Safety Report 9486441 (Version 2)
Quarter: 2014Q1

REPORT INFORMATION
  Report Type: Spontaneous
  Country: US (occurrence: US)
  Receive Date: 20130829
  Receipt Date: 20140210
  Transmission Date: 20141002
  Serious: No
  Sender: FDA-Public Use
  Company Number: US-PFIZER INC-2013249460

PATIENT
  Age: 80 Year
  Sex: Male
  Weight: 93.42 kg

DRUGS (9)
  1. LYRICA [Suspect]
     Indication: NEURALGIA
     Dosage: 50 MG, UNK
     Dates: start: 2011
  2. LYRICA [Suspect]
     Dosage: 50 MG, DAILY
     Dates: start: 2012, end: 2012
  3. OXYCODONE [Concomitant]
     Dosage: UNK
  4. GABAPENTIN [Concomitant]
     Dosage: UNK
  5. CELEBREX [Concomitant]
     Indication: ARTHRITIS
     Dosage: 200 MG, DAILY
  6. CELEBREX [Concomitant]
     Indication: ARTHRITIS
  7. MORPHINE SULFATE [Concomitant]
     Indication: PAIN
     Dosage: 30 MG, 3X/DAY/ 90MG DAILY
  8. MORPHINE SULFATE [Concomitant]
     Indication: BACK PAIN
  9. MORPHINE SULFATE [Concomitant]
     Indication: BACK PAIN
     Dosage: 30 MG, 3X/DAY

REACTIONS (1)
  - Drug ineffective [Unknown]
